FAERS Safety Report 4268057-9 (Version None)
Quarter: 2004Q1

REPORT INFORMATION
  Report Type: 
  Country: None (occurrence: None)
  Receive Date: 20040109
  Receipt Date: 20040109
  Transmission Date: 20041129
  Serious: No
  Sender: FDA-Public Use
  Company Number: None

PATIENT
  Age: 61 Year
  Sex: Male
  Weight: 69.5 kg

DRUGS (1)
  1. PROCRIT 40,000 IU ORTHOBIOTECH [Suspect]
     Indication: ANAEMIA
     Dosage: 40,000 IU WEEKLY SUBCUTANEOUS
     Route: 058
     Dates: start: 20031104, end: 20031223

REACTIONS (3)
  - BACK PAIN [None]
  - METASTASES TO SPINE [None]
  - PHLEBOTHROMBOSIS [None]
